FAERS Safety Report 8776896 (Version 1)
Quarter: 2012Q4

REPORT INFORMATION
  Report Type: 
  Country: FR (occurrence: FR)
  Receive Date: 20120911
  Receipt Date: 20120911
  Transmission Date: 20130627
  Serious: Yes (Other)
  Sender: FDA-Public Use
  Company Number: FR-BAYER-2012-092529

PATIENT
  Age: 42 Year
  Sex: Female

DRUGS (1)
  1. MIRENA [Suspect]
     Dosage: 20 ?g, CONT
     Route: 015

REACTIONS (3)
  - Ectopic pregnancy [None]
  - Intra-abdominal haemorrhage [None]
  - Amenorrhoea [None]
